FAERS Safety Report 5351811-X (Version None)
Quarter: 2007Q2

REPORT INFORMATION
  Report Type: 
  Country: None (occurrence: None)
  Receive Date: 20070521
  Receipt Date: 20070302
  Transmission Date: 20071010
  Serious: No
  Sender: FDA-Public Use
  Company Number: WAES 0703USA00488

PATIENT
  Sex: Male

DRUGS (4)
  1. JANUVIA [Suspect]
     Indication: DIABETES MELLITUS NON-INSULIN-DEPENDENT
     Dosage: 100MG/DAILY/PO
     Route: 048
  2. AVANDIA [Concomitant]
  3. [THERAPY UNSPECIFIED] [Concomitant]
  4. METFORMIN [Concomitant]

REACTIONS (1)
  - HYPOCALCAEMIA [None]
